FAERS Safety Report 11355141 (Version 5)
Quarter: 2018Q1

REPORT INFORMATION
  Report Type: Spontaneous
  Country: US (occurrence: US)
  Receive Date: 20150807
  Receipt Date: 20180118
  Transmission Date: 20180508
  Serious: Yes (Other)
  Sender: FDA-Public Use
  Company Number: US-JNJFOC-20150714041

PATIENT
  Sex: Male

DRUGS (12)
  1. INVEGA [Suspect]
     Active Substance: PALIPERIDONE
     Indication: SLEEP DISORDER
     Dosage: 3 MG AND 6 MG
     Route: 048
     Dates: start: 2013, end: 2014
  2. RISPERDAL [Suspect]
     Active Substance: RISPERIDONE
     Indication: DEPRESSION
     Dosage: 0.5 MG, 1 MG, 2 MG AND 3 MG.
     Route: 048
     Dates: start: 2012, end: 2012
  3. RISPERDAL [Suspect]
     Active Substance: RISPERIDONE
     Indication: PSYCHOTIC DISORDER
     Dosage: 0.5 MG, 1 MG, 2 MG AND 3 MG.
     Route: 048
     Dates: start: 2005, end: 2007
  4. RISPERDAL [Suspect]
     Active Substance: RISPERIDONE
     Indication: SCHIZOAFFECTIVE DISORDER
     Dosage: 0.5 MG, 1 MG, 2 MG AND 3 MG.
     Route: 048
     Dates: start: 2005, end: 2007
  5. RISPERDAL [Suspect]
     Active Substance: RISPERIDONE
     Indication: DEPRESSION
     Dosage: 0.5 MG, 1 MG, 2 MG AND 3 MG.
     Route: 048
     Dates: start: 2005, end: 2007
  6. RISPERDAL [Suspect]
     Active Substance: RISPERIDONE
     Indication: ATTENTION DEFICIT/HYPERACTIVITY DISORDER
     Dosage: 0.5 MG, 1 MG, 2 MG AND 3 MG.
     Route: 048
     Dates: start: 2005, end: 2007
  7. RISPERDAL [Suspect]
     Active Substance: RISPERIDONE
     Indication: SCHIZOAFFECTIVE DISORDER
     Dosage: 0.5 MG, 1 MG, 2 MG AND 3 MG.
     Route: 048
     Dates: start: 2012, end: 2012
  8. RISPERDAL [Suspect]
     Active Substance: RISPERIDONE
     Indication: CONDUCT DISORDER
     Dosage: 0.5 MG, 1 MG, 2 MG AND 3 MG.
     Route: 048
     Dates: start: 2005, end: 2007
  9. RISPERDAL [Suspect]
     Active Substance: RISPERIDONE
     Indication: PSYCHOTIC DISORDER
     Dosage: 0.5 MG, 1 MG, 2 MG AND 3 MG.
     Route: 048
     Dates: start: 2012, end: 2012
  10. RISPERDAL [Suspect]
     Active Substance: RISPERIDONE
     Indication: ATTENTION DEFICIT/HYPERACTIVITY DISORDER
     Dosage: 0.5 MG, 1 MG, 2 MG AND 3 MG.
     Route: 048
     Dates: start: 2012, end: 2012
  11. RISPERDAL [Suspect]
     Active Substance: RISPERIDONE
     Indication: CONDUCT DISORDER
     Dosage: 0.5 MG, 1 MG, 2 MG AND 3 MG.
     Route: 048
     Dates: start: 2012, end: 2012
  12. RISPERIDONE. [Suspect]
     Active Substance: RISPERIDONE
     Indication: PRODUCT USED FOR UNKNOWN INDICATION
     Route: 048

REACTIONS (5)
  - Abnormal weight gain [Unknown]
  - Hyperprolactinaemia [Unknown]
  - Product use in unapproved indication [Unknown]
  - Gynaecomastia [Not Recovered/Not Resolved]
  - Off label use [Unknown]

NARRATIVE: CASE EVENT DATE: 2005
